FAERS Safety Report 16341862 (Version 1)
Quarter: 2019Q2

REPORT INFORMATION
  Report Type: Spontaneous
  Country: US (occurrence: US)
  Receive Date: 20190521
  Receipt Date: 20190521
  Transmission Date: 20190711
  Serious: Yes (Hospitalization)
  Sender: FDA-Public Use
  Company Number: None

PATIENT
  Age: 43 Year
  Sex: Male
  Weight: 91.8 kg

DRUGS (2)
  1. LEVOTHYROXINE. [Concomitant]
     Active Substance: LEVOTHYROXINE
  2. SULFAMETHOX/TRIMETH [Suspect]
     Active Substance: SULFAMETHAZINE\TRIMETHOPRIM
     Indication: LYMPH GLAND INFECTION
     Dosage: ?          QUANTITY:10 TABLET(S);?
     Route: 048
     Dates: start: 20190509, end: 20190513

REACTIONS (8)
  - Sneezing [None]
  - Headache [None]
  - Fatigue [None]
  - Pyrexia [None]
  - Migraine [None]
  - Pulmonary congestion [None]
  - White blood cell count increased [None]
  - Malaise [None]

NARRATIVE: CASE EVENT DATE: 20190513
